FAERS Safety Report 18242487 (Version 1)
Quarter: 2020Q3

REPORT INFORMATION
  Report Type: Report from Study
  Country: FR (occurrence: FR)
  Receive Date: 20200908
  Receipt Date: 20200908
  Transmission Date: 20201103
  Serious: Yes (Hospitalization)
  Sender: FDA-Public Use
  Company Number: FR-PFIZER INC-2020342161

PATIENT
  Age: 57 Year
  Sex: Male

DRUGS (5)
  1. BENEPALI [Suspect]
     Active Substance: ETANERCEPT
     Indication: RHEUMATOID ARTHRITIS
     Route: 065
  2. IMRALDI [Suspect]
     Active Substance: ADALIMUMAB
     Indication: RHEUMATOID ARTHRITIS
     Dosage: 40 MG, EVERY 2 WEEKS
     Route: 065
     Dates: end: 20190813
  3. HULIO [Concomitant]
     Active Substance: ADALIMUMAB-FKJP
     Dosage: 40 MG, EVERY 2 WEEKS
     Route: 065
     Dates: start: 20191121
  4. HUMIRA [Concomitant]
     Active Substance: ADALIMUMAB
     Dosage: 40 MG, EVERY 2 WEEKS
     Route: 065
     Dates: start: 20190814, end: 20191120
  5. METHOTREXATE SODIUM. [Suspect]
     Active Substance: METHOTREXATE SODIUM
     Dosage: 15 MG, WEEKLY
     Route: 065

REACTIONS (2)
  - Cardiac failure congestive [Not Recovered/Not Resolved]
  - Cardiac failure [Not Recovered/Not Resolved]

NARRATIVE: CASE EVENT DATE: 20190703
